FAERS Safety Report 19383141 (Version 1)
Quarter: 2021Q2

REPORT INFORMATION
  Report Type: Report from Study
  Country: HU (occurrence: HU)
  Receive Date: 20210607
  Receipt Date: 20210607
  Transmission Date: 20210717
  Serious: Yes (Death)
  Sender: FDA-Public Use
  Company Number: HU-SUN PHARMACEUTICAL INDUSTRIES LTD-2021R1-298946

PATIENT
  Sex: Male

DRUGS (7)
  1. PREDNISOLONE. [Suspect]
     Active Substance: PREDNISOLONE
     Indication: GREY ZONE LYMPHOMA
     Route: 065
  2. NIVOLUMAB [Suspect]
     Active Substance: NIVOLUMAB
     Indication: GREY ZONE LYMPHOMA
     Dosage: UNK
     Route: 065
  3. BRENTUXIMAB VEDOTIN [Suspect]
     Active Substance: BRENTUXIMAB VEDOTIN
     Indication: GREY ZONE LYMPHOMA
     Dosage: UNK
     Route: 065
  4. BENDAMUSTIN [Suspect]
     Active Substance: BENDAMUSTINE
     Indication: GREY ZONE LYMPHOMA
     Dosage: UNK
     Route: 065
  5. CYTARABINE. [Suspect]
     Active Substance: CYTARABINE
     Indication: GREY ZONE LYMPHOMA
     Dosage: UNK
     Route: 065
  6. DEXAMETHASONE. [Suspect]
     Active Substance: DEXAMETHASONE
     Indication: GREY ZONE LYMPHOMA
     Dosage: UNK
     Route: 065
  7. CISPLATIN. [Suspect]
     Active Substance: CISPLATIN
     Indication: GREY ZONE LYMPHOMA
     Dosage: UNK
     Route: 065

REACTIONS (1)
  - Drug ineffective [Fatal]
